FAERS Safety Report 21122561 (Version 1)
Quarter: 2022Q3

REPORT INFORMATION
  Report Type: Other
  Country: EG (occurrence: None)
  Receive Date: 20220723
  Receipt Date: 20220723
  Transmission Date: 20221027
  Serious: Yes (Hospitalization)
  Sender: FDA-Public Use
  Company Number: EG-ROCHE-3141924

PATIENT

DRUGS (4)
  1. RIBAVIRIN [Suspect]
     Active Substance: RIBAVIRIN
     Indication: Chronic hepatitis C
     Dosage: TOTAL DAILY DOSE WAS DEPENDENT ON BODY WEIGHT :{ 75 KG, 1000 MG; { 75 KG, 1200 MG
     Route: 048
  2. OMBITASVIR [Suspect]
     Active Substance: OMBITASVIR
     Indication: Chronic hepatitis C
     Dosage: TAKEN WITH FOOD ONCE DAILY
     Route: 048
  3. PARITAPREVIR [Suspect]
     Active Substance: PARITAPREVIR
     Indication: Chronic hepatitis C
     Dosage: TAKEN WITH FOOD ONCE DAILY
     Route: 048
  4. RITONAVIR [Suspect]
     Active Substance: RITONAVIR
     Indication: Chronic hepatitis C
     Dosage: TAKEN WITH FOOD ONCE DAILY
     Route: 048

REACTIONS (1)
  - Haemorrhage [Unknown]
